FAERS Safety Report 8414947-2 (Version None)
Quarter: 2012Q2

REPORT INFORMATION
  Report Type: 
  Country: None (occurrence: None)
  Receive Date: 20120601
  Receipt Date: 20120601
  Transmission Date: 20120825
  Serious: Yes (Other)
  Sender: FDA-Public Use
  Company Number: None

PATIENT
  Age: 35 Year
  Sex: Female
  Weight: 76.2043 kg

DRUGS (2)
  1. CYMBALTA [Suspect]
     Indication: FIBROMYALGIA
     Dosage: 30MG TID PO
     Route: 048
     Dates: start: 20080810, end: 20120303
  2. CYMBALTA [Suspect]
     Indication: DEPRESSION
     Dosage: 30MG TID PO
     Route: 048
     Dates: start: 20080810, end: 20120303

REACTIONS (3)
  - PREGNANCY [None]
  - MATERNAL EXPOSURE DURING PREGNANCY [None]
  - PARAESTHESIA [None]
